FAERS Safety Report 10958345 (Version 2)
Quarter: 2015Q2

REPORT INFORMATION
  Report Type: Report from Study
  Country: DE (occurrence: DE)
  Receive Date: 20150326
  Receipt Date: 20150420
  Transmission Date: 20150821
  Serious: Yes (Hospitalization)
  Sender: FDA-Public Use
  Company Number: PHHY2015DE034401

PATIENT
  Sex: Female
  Weight: 55 kg

DRUGS (2)
  1. EXEMESTANE. [Concomitant]
     Active Substance: EXEMESTANE
     Indication: PRODUCT USED FOR UNKNOWN INDICATION
     Dosage: 25 MG
     Route: 065
     Dates: start: 20140804
  2. EVEROLIMUS [Suspect]
     Active Substance: EVEROLIMUS
     Indication: BREAST CANCER METASTATIC
     Dosage: 10 MG, QD
     Route: 048
     Dates: start: 20140804, end: 20141027

REACTIONS (4)
  - Laryngitis [Recovering/Resolving]
  - Stomatitis [Recovering/Resolving]
  - General physical health deterioration [Recovered/Resolved]
  - Cough [Recovering/Resolving]

NARRATIVE: CASE EVENT DATE: 20141027
